FAERS Safety Report 24842746 (Version 1)
Quarter: 2025Q1

REPORT INFORMATION
  Report Type: Spontaneous
  Country: TR (occurrence: TR)
  Receive Date: 20250115
  Receipt Date: 20250115
  Transmission Date: 20250408
  Serious: Yes (Hospitalization, Other)
  Sender: JUBILANT
  Company Number: TR-JUBILANT CADISTA PHARMACEUTICALS-2025TR000026

PATIENT
  Age: 84 Year
  Sex: Male

DRUGS (2)
  1. QUETIAPINE FUMARATE [Suspect]
     Active Substance: QUETIAPINE FUMARATE
     Indication: Delusion
     Dosage: 75 MG, ONCE PER DAY
  2. QUETIAPINE FUMARATE [Suspect]
     Active Substance: QUETIAPINE FUMARATE
     Indication: Insomnia

REACTIONS (3)
  - Myoclonic epilepsy [Recovered/Resolved]
  - Tremor [Recovered/Resolved]
  - Status epilepticus [Recovered/Resolved]
